FAERS Safety Report 9124463 (Version 1)
Quarter: 2013Q1

REPORT INFORMATION
  Report Type: Spontaneous
  Country: IN (occurrence: IN)
  Receive Date: 20130227
  Receipt Date: 20130227
  Transmission Date: 20140127
  Serious: Yes (Hospitalization)
  Sender: FDA-Public Use
  Company Number: PHHY2013IN018158

PATIENT
  Age: 4 Year
  Sex: Male

DRUGS (1)
  1. HALOPERIDOL [Suspect]
     Route: 048

REACTIONS (14)
  - Accidental poisoning [Recovered/Resolved]
  - Parkinson^s disease [Recovered/Resolved]
  - Hypersomnia [Recovered/Resolved]
  - Muscle contractions involuntary [Recovered/Resolved]
  - Hyperreflexia [Recovered/Resolved]
  - Altered state of consciousness [Recovered/Resolved]
  - Somnolence [Recovered/Resolved]
  - Hyperhidrosis [Recovered/Resolved]
  - Hyperthermia [Recovered/Resolved]
  - Urinary retention [Recovered/Resolved]
  - Dystonia [Recovered/Resolved]
  - Intention tremor [Recovered/Resolved]
  - Tremor [Recovered/Resolved]
  - Nystagmus [Recovered/Resolved]
